FAERS Safety Report 11698245 (Version 1)
Quarter: 2015Q4

REPORT INFORMATION
  Report Type: Spontaneous
  Country: US (occurrence: US)
  Receive Date: 20151104
  Receipt Date: 20151104
  Transmission Date: 20160304
  Serious: Yes (Other)
  Sender: FDA-Public Use
  Company Number: US-BAYER-2015-456516

PATIENT
  Age: 76 Year
  Sex: Female
  Weight: 56.69 kg

DRUGS (3)
  1. CORICIDIN HBP COLD AND FLU [Suspect]
     Active Substance: ACETAMINOPHEN\CHLORPHENIRAMINE MALEATE
     Indication: NASOPHARYNGITIS
     Dosage: 1 DF, PRN
     Route: 048
  2. CORICIDIN HBP COLD AND FLU [Suspect]
     Active Substance: ACETAMINOPHEN\CHLORPHENIRAMINE MALEATE
     Indication: NASOPHARYNGITIS
     Dosage: 2 DF, ONCE
     Dates: start: 20151024, end: 20151024
  3. PRAVASTATIN [Concomitant]
     Active Substance: PRAVASTATIN\PRAVASTATIN SODIUM

REACTIONS (5)
  - Burning sensation [None]
  - Erythema [Not Recovered/Not Resolved]
  - Somnolence [Recovered/Resolved]
  - Erythema [Recovering/Resolving]
  - Pruritus [None]

NARRATIVE: CASE EVENT DATE: 20151024
